FAERS Safety Report 25577870 (Version 1)
Quarter: 2025Q3

REPORT INFORMATION
  Report Type: Spontaneous
  Country: US (occurrence: US)
  Receive Date: 20250718
  Receipt Date: 20250718
  Transmission Date: 20251020
  Serious: No
  Sender: NOVO NORDISK
  Company Number: US-NOVOPROD-1432213

PATIENT
  Age: 50 Year
  Sex: Male

DRUGS (1)
  1. RYBELSUS [Suspect]
     Active Substance: SEMAGLUTIDE
     Indication: Type 2 diabetes mellitus
     Dosage: 3 MG, QW(TOOK ONE PILL THIS MORNING)
     Route: 048
     Dates: start: 20250509

REACTIONS (1)
  - Visual brightness [Not Recovered/Not Resolved]

NARRATIVE: CASE EVENT DATE: 20250509
